FAERS Safety Report 17807728 (Version 1)
Quarter: 2020Q2

REPORT INFORMATION
  Report Type: Report from Study
  Country: US (occurrence: US)
  Receive Date: 20200520
  Receipt Date: 20200520
  Transmission Date: 20200714
  Serious: Yes (Hospitalization)
  Sender: FDA-Public Use
  Company Number: US-PUMA BIOTECHNOLOGY, LTD.-2020US002743

PATIENT

DRUGS (1)
  1. NERLYNX [Suspect]
     Active Substance: NERATINIB
     Indication: PANCREATIC CARCINOMA
     Dosage: 240 MG, DAILY
     Route: 048
     Dates: start: 20200215

REACTIONS (3)
  - Off label use [Unknown]
  - Hospitalisation [Unknown]
  - Pancreatic carcinoma [Unknown]

NARRATIVE: CASE EVENT DATE: 2020
